FAERS Safety Report 9889339 (Version 1)
Quarter: 2014Q1

REPORT INFORMATION
  Report Type: Spontaneous
  Country: US (occurrence: US)
  Receive Date: 20140211
  Receipt Date: 20140211
  Transmission Date: 20141002
  Serious: Yes (Congenital Anomaly, Other)
  Sender: FDA-Public Use
  Company Number: US-FRI-1000054042

PATIENT
  Age: 0 Day
  Sex: Male

DRUGS (1)
  1. LEXAPRO [Suspect]
     Route: 064

REACTIONS (7)
  - Hydrocephalus [Unknown]
  - Arnold-Chiari malformation [Unknown]
  - Congenital central nervous system anomaly [Unknown]
  - Cleft lip and palate [Unknown]
  - Cerebral dysgenesis [Unknown]
  - Congenital anomaly [Unknown]
  - Convulsion [Unknown]
